FAERS Safety Report 12261513 (Version 2)
Quarter: 2016Q2

REPORT INFORMATION
  Report Type: Report from Study
  Country: US (occurrence: US)
  Receive Date: 20160412
  Receipt Date: 20160616
  Transmission Date: 20160815
  Serious: Yes (Other)
  Sender: FDA-Public Use
  Company Number: US-ASTRAZENECA-2016SE00519

PATIENT
  Sex: Male

DRUGS (2)
  1. IRESSA [Suspect]
     Active Substance: GEFITINIB
     Indication: LEUKAEMIA
     Route: 048
     Dates: start: 20160222
  2. IRESSA [Suspect]
     Active Substance: GEFITINIB
     Indication: LEUKAEMIA
     Route: 048
     Dates: start: 20151211

REACTIONS (13)
  - Liver disorder [Recovered/Resolved]
  - Dysuria [Unknown]
  - Urinary incontinence [Unknown]
  - Abdominal pain lower [Unknown]
  - Purpura [Unknown]
  - Pain in extremity [Unknown]
  - Rash generalised [Unknown]
  - Blood urine present [Unknown]
  - Headache [Unknown]
  - Off label use [Unknown]
  - Product use issue [Unknown]
  - Bladder pain [Recovering/Resolving]
  - Back pain [Unknown]
